FAERS Safety Report 4326826-0 (Version None)
Quarter: 2004Q1

REPORT INFORMATION
  Report Type: 
  Country: None (occurrence: None)
  Receive Date: 20040322
  Receipt Date: 20040108
  Transmission Date: 20041129
  Serious: Yes (Disabling, Other)
  Sender: FDA-Public Use
  Company Number: PHEH2003US10857

PATIENT
  Age: 66 Year
  Sex: Female
  Weight: 81.6 kg

DRUGS (4)
  1. ZOMETA [Suspect]
     Indication: MULTIPLE MYELOMA
     Dosage: 4 MG, EVERY 4 WEEKS, INTRAVENOUS
     Route: 042
     Dates: start: 20031114, end: 20031114
  2. MICARDIS [Concomitant]
  3. LEVOXYL [Concomitant]
  4. XANAX [Concomitant]

REACTIONS (7)
  - ARTHRALGIA [None]
  - BLOOD PRESSURE INCREASED [None]
  - MUSCULOSKELETAL STIFFNESS [None]
  - MYALGIA [None]
  - PAIN [None]
  - PYREXIA [None]
  - SWELLING [None]
